FAERS Safety Report 4597345-1 (Version None)
Quarter: 2005Q1

REPORT INFORMATION
  Report Type: 
  Country: None (occurrence: None)
  Receive Date: 20050303
  Receipt Date: 20050216
  Transmission Date: 20050727
  Serious: Yes (Hospitalization)
  Sender: FDA-Public Use
  Company Number: US-BRISTOL-MYERS SQUIBB COMPANY-12865598

PATIENT
  Age: 48 Year
  Sex: Male
  Weight: 72 kg

DRUGS (7)
  1. CETUXIMAB [Suspect]
     Indication: NEOPLASM MALIGNANT
     Dosage: 1235 MG TOTAL ADMINISTERED THIS COURSE.
     Route: 042
     Dates: start: 20050208
  2. CISPLATIN [Suspect]
     Indication: NEOPLASM MALIGNANT
     Route: 042
     Dates: start: 20050208
  3. RADIATION THERAPY [Suspect]
     Indication: NEOPLASM MALIGNANT
     Dosage: EXTERNAL BEAM - 1000 GY
     Dates: start: 20050215
  4. ATIVAN [Concomitant]
  5. CIPRO [Concomitant]
  6. COMPAZINE [Concomitant]
  7. PEPCID [Concomitant]

REACTIONS (4)
  - HYPOKALAEMIA [None]
  - NAUSEA [None]
  - PNEUMONIA STAPHYLOCOCCAL [None]
  - VOMITING [None]
